FAERS Safety Report 10968043 (Version 1)
Quarter: 2015Q1

REPORT INFORMATION
  Report Type: Spontaneous
  Country: US (occurrence: US)
  Receive Date: 20150330
  Receipt Date: 20150330
  Transmission Date: 20150721
  Serious: Yes (Other)
  Sender: FDA-Public Use
  Company Number: US-MYLANLABS-2015M1010094

PATIENT

DRUGS (1)
  1. PHENYTOIN. [Suspect]
     Active Substance: PHENYTOIN
     Route: 048

REACTIONS (6)
  - Dysarthria [Unknown]
  - Toxicity to various agents [Unknown]
  - Confusional state [Unknown]
  - Diplopia [Unknown]
  - Nystagmus [Unknown]
  - Ataxia [Unknown]
